FAERS Safety Report 6042900-5 (Version None)
Quarter: 2009Q1

REPORT INFORMATION
  Report Type: 
  Country: None (occurrence: None)
  Receive Date: 20090119
  Receipt Date: 20090114
  Transmission Date: 20090719
  Serious: Yes (Other)
  Sender: FDA-Public Use
  Company Number: A0763429A

PATIENT
  Sex: Female

DRUGS (1)
  1. ADVAIR DISKUS 100/50 [Suspect]
     Indication: ASTHMA
     Route: 055

REACTIONS (5)
  - ASTHMA [None]
  - COUGH [None]
  - DRUG INEFFECTIVE [None]
  - LUNG DISORDER [None]
  - PRODUCT QUALITY ISSUE [None]
